FAERS Safety Report 6173591-0 (Version None)
Quarter: 2009Q2

REPORT INFORMATION
  Report Type: 
  Country: None (occurrence: None)
  Receive Date: 20090429
  Receipt Date: 20090429
  Transmission Date: 20091009
  Serious: Yes (Other)
  Sender: FDA-Public Use
  Company Number: None

PATIENT
  Sex: Female
  Weight: 58.9676 kg

DRUGS (1)
  1. GENERIC FOR MAXIDE (TRIAMTERENE) 37.5 - 25 MANUFACTURER - MYLAN [Suspect]
     Indication: BLOOD PRESSURE
     Dosage: 1 A DAY
     Dates: start: 20070901, end: 20080401

REACTIONS (9)
  - ANOREXIA [None]
  - ASTHENIA [None]
  - DYSPHAGIA [None]
  - EAR DISORDER [None]
  - EYE DISORDER [None]
  - MALAISE [None]
  - PHARYNGEAL DISORDER [None]
  - SALIVARY DUCT INFLAMMATION [None]
  - WEIGHT DECREASED [None]
